FAERS Safety Report 11878945 (Version 4)
Quarter: 2016Q1

REPORT INFORMATION
  Report Type: Spontaneous
  Country: JP (occurrence: JP)
  Receive Date: 20151230
  Receipt Date: 20160224
  Transmission Date: 20160526
  Serious: Yes (Hospitalization)
  Sender: FDA-Public Use
  Company Number: JP-B.I. PHARMACEUTICALS,INC./RIDGEFIELD-2015-BI-26816NB

PATIENT
  Age: 73 Year
  Sex: Male
  Weight: 61.6 kg

DRUGS (9)
  1. CISPLATIN. [Concomitant]
     Active Substance: CISPLATIN
     Indication: HEPATOCELLULAR CARCINOMA
     Dosage: 10 MG
     Route: 013
     Dates: start: 20150413, end: 20150417
  2. URSO [Suspect]
     Active Substance: URSODIOL
     Indication: PRODUCT USED FOR UNKNOWN INDICATION
     Dosage: 600 MG
     Route: 048
  3. 5-FU [Concomitant]
     Active Substance: FLUOROURACIL
     Dosage: 250 MG
     Route: 013
     Dates: start: 20150427, end: 20150430
  4. TRAZENTA [Suspect]
     Active Substance: LINAGLIPTIN
     Indication: TYPE 2 DIABETES MELLITUS
     Dosage: 5 MG
     Route: 048
     Dates: start: 20150407, end: 20150519
  5. 5-FU [Concomitant]
     Active Substance: FLUOROURACIL
     Indication: HEPATOCELLULAR CARCINOMA
     Dosage: 250 MG
     Route: 013
     Dates: start: 20150413, end: 20150417
  6. CISPLATIN. [Concomitant]
     Active Substance: CISPLATIN
     Dosage: 10 MG
     Route: 013
     Dates: start: 20150427, end: 20150430
  7. NEXIUM [Suspect]
     Active Substance: ESOMEPRAZOLE MAGNESIUM
     Indication: PRODUCT USED FOR UNKNOWN INDICATION
     Dosage: 20 MG
     Route: 048
     Dates: end: 20150514
  8. 5-FU [Concomitant]
     Active Substance: FLUOROURACIL
     Dosage: 250 MG
     Route: 013
     Dates: start: 20150420, end: 20150420
  9. CISPLATIN. [Concomitant]
     Active Substance: CISPLATIN
     Dosage: 10 MG
     Route: 013
     Dates: start: 20150420, end: 20150420

REACTIONS (1)
  - Platelet count decreased [Not Recovered/Not Resolved]

NARRATIVE: CASE EVENT DATE: 20150430
